FAERS Safety Report 21116664 (Version 1)
Quarter: 2022Q3

REPORT INFORMATION
  Report Type: Spontaneous
  Country: US (occurrence: US)
  Receive Date: 20220722
  Receipt Date: 20220722
  Transmission Date: 20221027
  Serious: Yes (Hospitalization, Other)
  Sender: FDA-Public Use
  Company Number: US-UNITED THERAPEUTICS-UNT-2022-015432

PATIENT
  Sex: Male
  Weight: 15.1 kg

DRUGS (3)
  1. DINUTUXIMAB [Suspect]
     Active Substance: DINUTUXIMAB
     Indication: Product used for unknown indication
     Dosage: UNK UNK, CYCLICAL
     Route: 041
  2. CAMPTOSAR [Suspect]
     Active Substance: IRINOTECAN HYDROCHLORIDE
     Indication: Product used for unknown indication
     Dosage: UNK
     Route: 065
  3. LEUKINE [Concomitant]
     Active Substance: SARGRAMOSTIM
     Indication: Product used for unknown indication
     Dosage: UNK
     Route: 065

REACTIONS (7)
  - Gene mutation identification test positive [Unknown]
  - Diarrhoea [Unknown]
  - SARS-CoV-2 test positive [Unknown]
  - Hypokalaemia [Unknown]
  - Hypertension [Unknown]
  - Dehydration [Unknown]
  - Treatment delayed [Unknown]

NARRATIVE: CASE EVENT DATE: 20220118
